FAERS Safety Report 18793191 (Version 1)
Quarter: 2021Q1

REPORT INFORMATION
  Report Type: Spontaneous
  Country: US (occurrence: US)
  Receive Date: 20210126
  Receipt Date: 20210126
  Transmission Date: 20210419
  Serious: Yes (Hospitalization)
  Sender: FDA-Public Use
  Company Number: None

PATIENT
  Age: 27 Year
  Sex: Male

DRUGS (1)
  1. COSENTYX [Suspect]
     Active Substance: SECUKINUMAB
     Indication: PSORIASIS
     Route: 058
     Dates: start: 20200714

REACTIONS (11)
  - Pain [None]
  - Scab [None]
  - Fatigue [None]
  - Arthritis [None]
  - Hypersensitivity [None]
  - Dyspnoea [None]
  - Cough [None]
  - Rhinorrhoea [None]
  - Diarrhoea [None]
  - Pyrexia [None]
  - COVID-19 [None]

NARRATIVE: CASE EVENT DATE: 20201229
